FAERS Safety Report 17915528 (Version 3)
Quarter: 2020Q3

REPORT INFORMATION
  Report Type: Spontaneous
  Country: US (occurrence: US)
  Receive Date: 20200619
  Receipt Date: 20200917
  Transmission Date: 20201103
  Serious: Yes (Other)
  Sender: FDA-Public Use
  Company Number: US-AEGERION PHARMACEUTICAL, INC-AEGR004879

PATIENT
  Age: 63 Year
  Sex: Female

DRUGS (2)
  1. JUXTAPID [Suspect]
     Active Substance: LOMITAPIDE MESYLATE
     Dosage: 5 MG, UNK
     Route: 048
     Dates: start: 20200701
  2. JUXTAPID [Suspect]
     Active Substance: LOMITAPIDE MESYLATE
     Indication: TYPE IIA HYPERLIPIDAEMIA
     Dosage: 10 MG, QD
     Route: 048
     Dates: start: 20130812, end: 20200617

REACTIONS (7)
  - Therapy interrupted [Recovered/Resolved]
  - Faeces soft [Recovering/Resolving]
  - Gastrointestinal procedural complication [Recovering/Resolving]
  - Anaemia [Not Recovered/Not Resolved]
  - Diet noncompliance [Recovered/Resolved]
  - Atrial fibrillation [Unknown]
  - Anal incontinence [Recovering/Resolving]

NARRATIVE: CASE EVENT DATE: 202006
